FAERS Safety Report 18562958 (Version 1)
Quarter: 2020Q4

REPORT INFORMATION
  Report Type: Spontaneous
  Country: US (occurrence: US)
  Receive Date: 20201130
  Receipt Date: 20201130
  Transmission Date: 20210114
  Serious: No
  Sender: FDA-Public Use
  Company Number: US-ROCHE-2543203

PATIENT
  Age: 78 Year
  Sex: Female
  Weight: 81.72 kg

DRUGS (4)
  1. AMOXICILLIN. [Concomitant]
     Active Substance: AMOXICILLIN
     Indication: SINUSITIS
     Route: 048
     Dates: start: 20200129
  2. BENZONATATE. [Concomitant]
     Active Substance: BENZONATATE
     Indication: COUGH
     Route: 048
     Dates: start: 20200129
  3. LUCENTIS [Suspect]
     Active Substance: RANIBIZUMAB
     Indication: NEOVASCULAR AGE-RELATED MACULAR DEGENERATION
     Route: 050
     Dates: start: 20191112
  4. ERYTHROMYCIN. [Concomitant]
     Active Substance: ERYTHROMYCIN
     Indication: CORNEAL ABRASION
     Dosage: FIRST DAY TWICE DAILY-SECOND DAY ONCE DAILY
     Route: 031
     Dates: start: 20200108, end: 20200109

REACTIONS (5)
  - Sinusitis [Not Recovered/Not Resolved]
  - Periorbital pain [Recovered/Resolved]
  - Lacrimation increased [Recovered/Resolved]
  - Epistaxis [Not Recovered/Not Resolved]
  - Corneal abrasion [Unknown]

NARRATIVE: CASE EVENT DATE: 20200107
